FAERS Safety Report 12203336 (Version 1)
Quarter: 2016Q1

REPORT INFORMATION
  Report Type: Spontaneous
  Country: US (occurrence: None)
  Receive Date: 20160322
  Receipt Date: 20160322
  Transmission Date: 20160526
  Serious: No
  Sender: FDA-Public Use
  Company Number: None

PATIENT
  Age: 58 Year
  Sex: Male

DRUGS (9)
  1. GLIPIZIDE. [Concomitant]
     Active Substance: GLIPIZIDE
  2. FASTCLIX LANCETS [Concomitant]
  3. TEMOZOLOMIDE 250 MG TEVA PHARMACEUTICALS [Suspect]
     Active Substance: TEMOZOLOMIDE
     Indication: BRAIN NEOPLASM MALIGNANT
     Dosage: 2 CAPSULES QD X 5 DAYS/MONTH ORAL
     Route: 048
     Dates: start: 20150604
  4. ENOXAPARIN [Concomitant]
     Active Substance: ENOXAPARIN
  5. ACCU-CHECK TEST STRIPS [Concomitant]
  6. LOVENOX [Concomitant]
     Active Substance: ENOXAPARIN SODIUM
  7. TEMOZOLOMIDE 100 MG TEVA PHARMACEUTICALS [Suspect]
     Active Substance: TEMOZOLOMIDE
     Indication: BRAIN NEOPLASM MALIGNANT
     Dosage: 1 CAPSULE QD X 5 DAYS/MONTH ORAL
     Route: 048
     Dates: start: 20150131
  8. LISINOPRIL. [Concomitant]
     Active Substance: LISINOPRIL
  9. COUMADIN [Concomitant]
     Active Substance: WARFARIN SODIUM

REACTIONS (2)
  - Pruritus [None]
  - Nausea [None]

NARRATIVE: CASE EVENT DATE: 20160321
